FAERS Safety Report 20559794 (Version 11)
Quarter: 2022Q3

REPORT INFORMATION
  Report Type: Report from Study
  Country: CO (occurrence: CO)
  Receive Date: 20220307
  Receipt Date: 20220909
  Transmission Date: 20221027
  Serious: Yes (Death, Hospitalization, Other)
  Sender: FDA-Public Use
  Company Number: CO-NOVARTISPH-NVSC2022CO051368

PATIENT
  Sex: Female
  Weight: 39 kg

DRUGS (6)
  1. KISQALI [Suspect]
     Active Substance: RIBOCICLIB
     Indication: Hormone receptor positive HER2 negative breast cancer
     Dosage: 600 MG, QD
     Route: 048
     Dates: start: 20220121
  2. KISQALI [Suspect]
     Active Substance: RIBOCICLIB
     Dosage: 600 MG, (200 MG) QD
     Route: 048
     Dates: start: 20220308
  3. KISQALI [Suspect]
     Active Substance: RIBOCICLIB
     Dosage: 400 MG, QD
     Route: 048
  4. FEMARA [Suspect]
     Active Substance: LETROZOLE
     Indication: Breast cancer
     Dosage: 2.5 MG, QD
     Route: 048
     Dates: start: 20220121
  5. FEMARA [Suspect]
     Active Substance: LETROZOLE
     Dosage: 2.5 MG, QD
     Route: 048
     Dates: start: 20220308
  6. GOSERELIN [Concomitant]
     Active Substance: GOSERELIN
     Indication: Breast cancer
     Dosage: UNK, QMO
     Route: 058
     Dates: start: 202201

REACTIONS (10)
  - Death [Fatal]
  - Decreased immune responsiveness [Unknown]
  - Pyrexia [Unknown]
  - Neutropenia [Unknown]
  - Weight decreased [Unknown]
  - Drug intolerance [Unknown]
  - Feeling abnormal [Unknown]
  - Decreased appetite [Unknown]
  - Abdominal discomfort [Unknown]
  - Pain [Unknown]
